FAERS Safety Report 13680249 (Version 1)
Quarter: 2017Q2

REPORT INFORMATION
  Report Type: Report from Study
  Country: None (occurrence: CA)
  Receive Date: 20170622
  Receipt Date: 20170622
  Transmission Date: 20170830
  Serious: Yes (Other)
  Sender: FDA-Public Use
  Company Number: CA-ABBVIE-17P-028-2012566-00

PATIENT
  Age: 51 Year
  Sex: Male
  Weight: 104.42 kg

DRUGS (4)
  1. KALETRA [Suspect]
     Active Substance: LOPINAVIR\RITONAVIR
     Indication: ANTIRETROVIRAL THERAPY
     Dosage: UNIT DOSE: 200MG/50MG 2 TABS??TOTAL DAILY DOSE:  800/200MG
     Route: 048
     Dates: start: 20080101, end: 2017
  2. TARO CLINDAMYCIN [Concomitant]
     Indication: SKIN DISORDER
     Route: 061
  3. LAMISIL [Concomitant]
     Active Substance: TERBINAFINE HYDROCHLORIDE
     Indication: SKIN DISORDER
     Route: 061
  4. TRIUMEQ [Concomitant]
     Active Substance: ABACAVIR SULFATE\DOLUTEGRAVIR SODIUM\LAMIVUDINE
     Indication: HIV INFECTION
     Route: 048
     Dates: start: 2017

REACTIONS (3)
  - Chest wall mass [Unknown]
  - Hodgkin^s disease [Unknown]
  - Axillary mass [Unknown]

NARRATIVE: CASE EVENT DATE: 201701
